FAERS Safety Report 7548659-4 (Version None)
Quarter: 2011Q2

REPORT INFORMATION
  Report Type: 
  Country: None (occurrence: None)
  Receive Date: 20110615
  Receipt Date: 20110607
  Transmission Date: 20111010
  Serious: Yes (Hospitalization, Other)
  Sender: FDA-Public Use
  Company Number: ES-ROXANE LABORATORIES, INC.-2011-RO-00783RO

PATIENT
  Age: 68 Year
  Sex: Female

DRUGS (10)
  1. CYCLOPHOSPHAMIDE [Suspect]
     Indication: MULTIPLE MYELOMA
  2. LENALIDOMIDE [Suspect]
     Dosage: 10 MG
  3. PREDNISONE [Suspect]
     Indication: MULTIPLE MYELOMA
  4. LENALIDOMIDE [Suspect]
     Dosage: 15 MG
  5. DEXAMETHASONE [Suspect]
     Indication: MULTIPLE MYELOMA
  6. LENALIDOMIDE [Suspect]
     Indication: MULTIPLE MYELOMA
     Dosage: 25 MG
  7. VINCRISTINE [Suspect]
     Indication: MULTIPLE MYELOMA
  8. CARMUSTINE [Suspect]
     Indication: MULTIPLE MYELOMA
  9. DOXORUBICIN HCL [Suspect]
     Indication: MULTIPLE MYELOMA
  10. MELPHALAN HYDROCHLORIDE [Suspect]
     Indication: MULTIPLE MYELOMA

REACTIONS (4)
  - ADRENAL INSUFFICIENCY [None]
  - MULTIPLE MYELOMA [None]
  - NEUTROPENIA [None]
  - PYREXIA [None]
